FAERS Safety Report 9992355 (Version 2)
Quarter: 2014Q2

REPORT INFORMATION
  Report Type: Spontaneous
  Country: US (occurrence: US)
  Receive Date: 20140310
  Receipt Date: 20140506
  Transmission Date: 20141212
  Serious: Yes (Other)
  Sender: FDA-Public Use
  Company Number: US-GLAXOSMITHKLINE-A1063107A

PATIENT
  Age: 61 Year
  Sex: Female

DRUGS (9)
  1. LAMICTAL [Suspect]
     Indication: PRODUCT USED FOR UNKNOWN INDICATION
     Dosage: 400MG TWICE PER DAY
     Route: 048
     Dates: start: 20060203
  2. FOSAMAX [Concomitant]
  3. IMURAN [Concomitant]
  4. VITAMIN D [Concomitant]
  5. DAPSONE [Concomitant]
  6. ZONEGRAN [Concomitant]
  7. PREDNISONE [Concomitant]
  8. ZOLOFT [Concomitant]
  9. IMITREX [Concomitant]

REACTIONS (1)
  - Interstitial lung disease [Not Recovered/Not Resolved]
